FAERS Safety Report 14085363 (Version 4)
Quarter: 2018Q1

REPORT INFORMATION
  Report Type: Spontaneous
  Country: US (occurrence: US)
  Receive Date: 20171013
  Receipt Date: 20180208
  Transmission Date: 20180508
  Serious: Yes (Other)
  Sender: FDA-Public Use
  Company Number: US-PFIZER INC-2017441863

PATIENT
  Age: 11 Year
  Sex: Female
  Weight: 34.2 kg

DRUGS (14)
  1. OMEGA 3 FISH OILS [Concomitant]
     Active Substance: OMEGA-3 FATTY ACIDS
     Dosage: 2 DF, 1X/DAY
     Dates: start: 20160413
  2. VITAMIN D3 [Concomitant]
     Active Substance: CHOLECALCIFEROL
     Indication: VITAMIN D DEFICIENCY
     Dosage: 2000 IU, 1X/DAY
     Dates: start: 20160413
  3. FERROUS SULFATE. [Concomitant]
     Active Substance: FERROUS SULFATE
     Dosage: 1 DF, DAILY (WITH MEALS FOR 120 DAYS)
     Route: 048
  4. GENOTROPIN [Suspect]
     Active Substance: SOMATROPIN
     Indication: GROWTH RETARDATION
     Dosage: 1.2 MG, UNK
  5. GENOTROPIN [Suspect]
     Active Substance: SOMATROPIN
     Dosage: 1.7 MG, CYCLIC (ONCE DAILY OR 6 DAYS A WEEK)
  6. GENOTROPIN [Suspect]
     Active Substance: SOMATROPIN
     Dosage: UNK
     Dates: end: 20170924
  7. SUPPRELIN [Concomitant]
     Active Substance: HISTRELIN ACETATE
     Indication: BODY HEIGHT BELOW NORMAL
     Dosage: UNK
     Dates: start: 201608
  8. GENOTROPIN [Suspect]
     Active Substance: SOMATROPIN
     Dosage: ALTERNATE 1.6 MG AND 1.8 MG EVERY OTHER DAY FOR 6 DAYS A WEEK
  9. GENOTROPIN [Suspect]
     Active Substance: SOMATROPIN
     Dosage: 1.7 MG, UNK [1.7MG INJECTION SIX TIMES PER WEEK]
     Dates: start: 201609
  10. IRON [Concomitant]
     Active Substance: IRON
     Indication: ANAEMIA
     Dosage: 10 MG, 1X/DAY
  11. GENOTROPIN [Suspect]
     Active Substance: SOMATROPIN
     Dosage: UNK
     Dates: start: 20171009
  12. IRON [Concomitant]
     Active Substance: IRON
     Dosage: 10 ML, 1X/DAY
     Dates: start: 20160413
  13. GENOTROPIN [Suspect]
     Active Substance: SOMATROPIN
     Dosage: 1.5 MG, UNK
  14. GENOTROPIN [Suspect]
     Active Substance: SOMATROPIN
     Indication: BODY HEIGHT BELOW NORMAL
     Dosage: UNK
     Dates: start: 201609

REACTIONS (6)
  - Malaise [Unknown]
  - Drug prescribing error [Unknown]
  - Headache [Not Recovered/Not Resolved]
  - Migraine [Not Recovered/Not Resolved]
  - Infection parasitic [Unknown]
  - Abdominal pain upper [Unknown]

NARRATIVE: CASE EVENT DATE: 201609
